FAERS Safety Report 21122827 (Version 1)
Quarter: 2022Q3

REPORT INFORMATION
  Report Type: Spontaneous
  Country: CA (occurrence: None)
  Receive Date: 20220723
  Receipt Date: 20220723
  Transmission Date: 20221027
  Serious: Yes (Death)
  Sender: FDA-Public Use
  Company Number: CA-ROCHE-3144318

PATIENT
  Age: 87 Year
  Sex: Female

DRUGS (20)
  1. RITUXIMAB [Suspect]
     Active Substance: RITUXIMAB
     Indication: Rheumatoid arthritis
     Route: 042
  2. ALISKIREN HEMIFUMARATE [Concomitant]
     Active Substance: ALISKIREN HEMIFUMARATE
  3. SPIRIVA [Concomitant]
     Active Substance: TIOTROPIUM BROMIDE MONOHYDRATE
     Route: 065
  4. AMLODIPINE [Concomitant]
     Active Substance: AMLODIPINE BESYLATE
     Route: 065
  5. CALCIUM [Concomitant]
     Active Substance: CALCIUM
  6. ASPIRIN [Concomitant]
     Active Substance: ASPIRIN
     Route: 065
  7. TYLENOL [Concomitant]
     Active Substance: ACETAMINOPHEN
     Route: 048
  8. SOLU-MEDROL [Concomitant]
     Active Substance: METHYLPREDNISOLONE SODIUM SUCCINATE
     Route: 042
  9. ATORVASTATIN CALCIUM [Concomitant]
     Active Substance: ATORVASTATIN CALCIUM
     Route: 048
  10. CLOPIDOGREL [Concomitant]
     Active Substance: CLOPIDOGREL BISULFATE
     Dosage: DRUG DOSE FIRST ADMINISTERED IS NOT PROVIDED
  11. IRON [Concomitant]
     Active Substance: IRON
     Indication: Anaemia
     Route: 065
  12. TIAMOL CREAM [Concomitant]
  13. SYNTHROID [Concomitant]
     Active Substance: LEVOTHYROXINE SODIUM
  14. LEFLUNOMIDE [Concomitant]
     Active Substance: LEFLUNOMIDE
  15. PREDNISONE [Concomitant]
     Active Substance: PREDNISONE
  16. LASIX [Concomitant]
     Active Substance: FUROSEMIDE
  17. ADVAIR HFA [Concomitant]
     Active Substance: FLUTICASONE PROPIONATE\SALMETEROL XINAFOATE
  18. ALENDRONATE SODIUM [Concomitant]
     Active Substance: ALENDRONATE SODIUM
  19. BENADRYL [Concomitant]
     Active Substance: DIPHENHYDRAMINE HYDROCHLORIDE
     Route: 048
  20. ANASTROZOLE [Concomitant]
     Active Substance: ANASTROZOLE

REACTIONS (1)
  - Death [Fatal]
